FAERS Safety Report 7915946-7 (Version None)
Quarter: 2011Q4

REPORT INFORMATION
  Report Type: 
  Country: None (occurrence: None)
  Receive Date: 20111115
  Receipt Date: 20111111
  Transmission Date: 20120403
  Serious: Yes (Hospitalization, Disabling)
  Sender: FDA-Public Use
  Company Number: US-MERCK-1003USA01388

PATIENT
  Age: 75 Year
  Sex: Female

DRUGS (9)
  1. BACLOFEN [Concomitant]
     Route: 065
     Dates: start: 19760101
  2. ACTONEL [Concomitant]
     Indication: OSTEOPOROSIS
     Route: 065
     Dates: start: 19700101
  3. ASCORBIC ACID [Concomitant]
     Route: 065
     Dates: start: 19700101
  4. FOSAMAX [Suspect]
     Indication: OSTEOPOROSIS
     Route: 048
     Dates: start: 20070101
  5. VITAMIN E [Concomitant]
     Route: 065
     Dates: start: 19700101
  6. BACTRIM [Concomitant]
     Route: 065
  7. ZANTAC [Concomitant]
     Route: 065
  8. VITAMINS (UNSPECIFIED) [Concomitant]
     Route: 048
     Dates: start: 19700101
  9. FOSAMAX [Suspect]
     Route: 048
     Dates: start: 20070101

REACTIONS (10)
  - SPINAL FRACTURE [None]
  - DRUG ADMINISTRATION ERROR [None]
  - SPINAL COMPRESSION FRACTURE [None]
  - TENDONITIS [None]
  - FEMUR FRACTURE [None]
  - FALL [None]
  - OSTEOPOROSIS [None]
  - STRESS FRACTURE [None]
  - IMPAIRED HEALING [None]
  - LOW TURNOVER OSTEOPATHY [None]
